FAERS Safety Report 12220042 (Version 10)
Quarter: 2017Q2

REPORT INFORMATION
  Report Type: Report from Study
  Country: CA (occurrence: CA)
  Receive Date: 20160330
  Receipt Date: 20170601
  Transmission Date: 20170830
  Serious: Yes (Hospitalization)
  Sender: FDA-Public Use
  Company Number: CA-ROCHE-1700005

PATIENT
  Age: 82 Year
  Sex: Male
  Weight: 77.7 kg

DRUGS (14)
  1. ESBRIET [Suspect]
     Active Substance: PIRFENIDONE
     Route: 048
     Dates: end: 201608
  2. ONBREZ BREEZHALER [Concomitant]
     Active Substance: INDACATEROL
  3. ESBRIET [Suspect]
     Active Substance: PIRFENIDONE
     Dosage: 534 MG-534 MG-801 MG
     Route: 048
     Dates: start: 2016
  4. FLUVASTATIN [Concomitant]
     Active Substance: FLUVASTATIN SODIUM
     Route: 065
  5. TERAZOSIN [Concomitant]
     Active Substance: TERAZOSIN\TERAZOSIN HYDROCHLORIDE
     Route: 065
  6. OXYGEN @ HOME [Concomitant]
  7. ESBRIET [Suspect]
     Active Substance: PIRFENIDONE
     Route: 048
     Dates: start: 2016, end: 20160623
  8. ESBRIET [Suspect]
     Active Substance: PIRFENIDONE
     Route: 048
  9. SPIRIVA [Concomitant]
     Active Substance: TIOTROPIUM BROMIDE MONOHYDRATE
  10. ACETYLSALICYLIC ACID [Concomitant]
     Active Substance: ASPIRIN
     Route: 065
  11. ESBRIET [Suspect]
     Active Substance: PIRFENIDONE
     Indication: IDIOPATHIC PULMONARY FIBROSIS
     Route: 048
     Dates: start: 20160108
  12. ESBRIET [Suspect]
     Active Substance: PIRFENIDONE
     Dosage: 267 MG - 267 MG - 534 MG
     Route: 048
     Dates: start: 20160115
  13. ESBRIET [Suspect]
     Active Substance: PIRFENIDONE
     Dosage: 534 MG - 267 MG - 534 MG
     Route: 048
     Dates: start: 20160122
  14. ESBRIET [Suspect]
     Active Substance: PIRFENIDONE
     Route: 048
     Dates: start: 201705

REACTIONS (12)
  - Rash [Unknown]
  - Urinary tract disorder [Not Recovered/Not Resolved]
  - Sputum increased [Not Recovered/Not Resolved]
  - Pneumonia [Not Recovered/Not Resolved]
  - Nausea [Not Recovered/Not Resolved]
  - Decreased appetite [Not Recovered/Not Resolved]
  - Fatigue [Not Recovered/Not Resolved]
  - Cough [Unknown]
  - Pulmonary function test abnormal [Unknown]
  - Back pain [Not Recovered/Not Resolved]
  - Productive cough [Not Recovered/Not Resolved]
  - Pain in extremity [Not Recovered/Not Resolved]

NARRATIVE: CASE EVENT DATE: 201603
